FAERS Safety Report 7991397 (Version 4)
Quarter: 2013Q2

REPORT INFORMATION
  Report Type: Spontaneous
  Country: US (occurrence: US)
  Receive Date: 20110615
  Receipt Date: 20130508
  Transmission Date: 20140414
  Serious: Yes (Hospitalization)
  Sender: FDA-Public Use
  Company Number: US-BAYER-2011-050093

PATIENT
  Age: 49 Year
  Sex: Female
  Weight: 65.76 kg

DRUGS (5)
  1. YASMIN [Suspect]
     Indication: ORAL CONTRACEPTION
     Dosage: UNK
     Dates: start: 2005, end: 200906
  2. YAZ [Suspect]
     Indication: ORAL CONTRACEPTION
     Dosage: UNK
     Dates: start: 2005, end: 200906
  3. BETA BLOCKING AGENTS [Concomitant]
  4. BETA BLOCKING AGENTS [Concomitant]
  5. BISOPROLOL FUMARATE W/HYDROCHLOROTHIAZIDE [Concomitant]

REACTIONS (2)
  - Myocardial infarction [None]
  - Injury [None]
